FAERS Safety Report 5303184-6 (Version None)
Quarter: 2007Q2

REPORT INFORMATION
  Report Type: 
  Country: None (occurrence: None)
  Receive Date: 20070420
  Receipt Date: 20070410
  Transmission Date: 20071010
  Serious: Yes (Hospitalization)
  Sender: FDA-Public Use
  Company Number: BR-ROCHE-456869

PATIENT
  Age: 22 Year
  Sex: Female
  Weight: 58 kg

DRUGS (2)
  1. ISOTRETINOIN [Suspect]
     Indication: ACNE
     Route: 048
     Dates: start: 20051115, end: 20060714
  2. UNSPECIFIED DRUG [Concomitant]
     Indication: CONTRACEPTION
     Dates: end: 20060515

REACTIONS (1)
  - ABORTION SPONTANEOUS [None]
